FAERS Safety Report 11908954 (Version 1)
Quarter: 2016Q1

REPORT INFORMATION
  Report Type: Spontaneous
  Country: CN (occurrence: CN)
  Receive Date: 20160111
  Receipt Date: 20160111
  Transmission Date: 20160526
  Serious: Yes (Life-Threatening, Hospitalization)
  Sender: FDA-Public Use
  Company Number: CN-GE HEALTHCARE MEDICAL DIAGNOSTICS-OMPQ-PR-1601S-0027

PATIENT
  Age: 40 Year
  Sex: Male
  Weight: 65 kg

DRUGS (2)
  1. OMNIPAQUE [Suspect]
     Active Substance: IOHEXOL
     Indication: DIAGNOSTIC PROCEDURE
  2. OMNIPAQUE [Suspect]
     Active Substance: IOHEXOL
     Indication: PRODUCT USED FOR UNKNOWN INDICATION
     Route: 042
     Dates: start: 20160107, end: 20160107

REACTIONS (3)
  - Respiratory arrest [Unknown]
  - Cardiac arrest [Unknown]
  - Rash [Unknown]

NARRATIVE: CASE EVENT DATE: 20160107
